FAERS Safety Report 8158424-5 (Version None)
Quarter: 2012Q1

REPORT INFORMATION
  Report Type: 
  Country: None (occurrence: None)
  Receive Date: 20120223
  Receipt Date: 20120214
  Transmission Date: 20120608
  Serious: Yes (Other)
  Sender: FDA-Public Use
  Company Number: BR-JNJFOC-20120207855

PATIENT
  Age: 76 Year
  Sex: Male
  Weight: 65 kg

DRUGS (3)
  1. OMEPRAZOLE [Concomitant]
     Indication: HIATUS HERNIA
     Route: 065
  2. GALANTAMINE HYDROBROMIDE [Suspect]
     Indication: PRODUCT USED FOR UNKNOWN INDICATION
     Route: 048
     Dates: end: 20110201
  3. GALANTAMINE HYDROBROMIDE [Suspect]
     Route: 048
     Dates: start: 20110201

REACTIONS (2)
  - INGUINAL HERNIA [None]
  - NAUSEA [None]
